FAERS Safety Report 15417607 (Version 1)
Quarter: 2018Q3

REPORT INFORMATION
  Report Type: Spontaneous
  Country: US (occurrence: US)
  Receive Date: 20180924
  Receipt Date: 20180924
  Transmission Date: 20181010
  Serious: No
  Sender: FDA-Public Use
  Company Number: US-PFIZER INC-2018376466

PATIENT
  Age: 80 Year
  Sex: Female
  Weight: 54.88 kg

DRUGS (1)
  1. IBRANCE [Suspect]
     Active Substance: PALBOCICLIB
     Indication: BREAST CANCER FEMALE
     Dosage: 100 MG, CYCLIC (ONCE A DAY, FOR 21 DAYS AND THEN 7 DAYS OFF)
     Route: 048

REACTIONS (4)
  - Neuralgia [Unknown]
  - Back pain [Unknown]
  - Chest pain [Unknown]
  - Drug dose omission [Unknown]
